FAERS Safety Report 10650493 (Version 2)
Quarter: 2015Q4

REPORT INFORMATION
  Report Type: Spontaneous
  Country: US (occurrence: US)
  Receive Date: 20141213
  Receipt Date: 20151204
  Transmission Date: 20160304
  Serious: No
  Sender: FDA-Public Use
  Company Number: US-BAUSCH-BL-2014-004634

PATIENT
  Sex: Male

DRUGS (2)
  1. XENAZINE [Suspect]
     Active Substance: TETRABENAZINE
     Route: 048
     Dates: start: 20140801
  2. XENAZINE [Suspect]
     Active Substance: TETRABENAZINE
     Indication: HUNTINGTON^S DISEASE
     Dosage: DAILY IN DIVIDED DOSES
     Route: 048
     Dates: start: 20140814

REACTIONS (2)
  - Drug ineffective [Unknown]
  - Psychomotor hyperactivity [Unknown]

NARRATIVE: CASE EVENT DATE: 2014
